FAERS Safety Report 8374053-2 (Version None)
Quarter: 2012Q2

REPORT INFORMATION
  Report Type: 
  Country: None (occurrence: None)
  Receive Date: 20120517
  Receipt Date: 20120517
  Transmission Date: 20120825
  Serious: Yes (Hospitalization)
  Sender: FDA-Public Use
  Company Number: None

PATIENT
  Age: 71 Year
  Sex: Male
  Weight: 127 kg

DRUGS (1)
  1. FERAHEME [Suspect]
     Indication: NEPHROGENIC ANAEMIA
     Dosage: 510MG X1 IV BOLUS
     Route: 040
     Dates: start: 20120515, end: 20120515

REACTIONS (9)
  - HYPOTENSION [None]
  - CYANOSIS [None]
  - HYPOXIA [None]
  - ACUTE CORONARY SYNDROME [None]
  - HYPERHIDROSIS [None]
  - ANAPHYLACTIC REACTION [None]
  - PRESYNCOPE [None]
  - ERUCTATION [None]
  - PULMONARY EMBOLISM [None]
